FAERS Safety Report 8030643-8 (Version None)
Quarter: 2012Q1

REPORT INFORMATION
  Report Type: 
  Country: None (occurrence: None)
  Receive Date: 20120109
  Receipt Date: 20120105
  Transmission Date: 20120608
  Serious: Yes (Hospitalization)
  Sender: FDA-Public Use
  Company Number: IT-ROCHE-1027636

PATIENT
  Sex: Female

DRUGS (1)
  1. HERCEPTIN [Suspect]
     Indication: BREAST CANCER STAGE IV
     Route: 042
     Dates: start: 20120104, end: 20120104

REACTIONS (4)
  - RASH [None]
  - PYREXIA [None]
  - BRONCHOSTENOSIS [None]
  - CHILLS [None]
